FAERS Safety Report 18522904 (Version 2)
Quarter: 2020Q4

REPORT INFORMATION
  Report Type: Spontaneous
  Country: JP (occurrence: JP)
  Receive Date: 20201119
  Receipt Date: 20201125
  Transmission Date: 20210114
  Serious: Yes (Death, Life-Threatening, Hospitalization)
  Sender: FDA-Public Use
  Company Number: JP-MYLANLABS-2020M1095642

PATIENT
  Age: 83 Year
  Sex: Female

DRUGS (11)
  1. AMLODIPINE                         /00972402/ [Concomitant]
     Active Substance: AMLODIPINE BESYLATE
     Dosage: UNK
     Dates: end: 20201105
  2. TERAMURO [Concomitant]
     Dosage: UNK
     Dates: end: 20201105
  3. SAMSCA [Concomitant]
     Active Substance: TOLVAPTAN
     Dosage: UNK
     Dates: start: 20201014, end: 20201105
  4. LASIX [Concomitant]
     Active Substance: FUROSEMIDE
     Dosage: UNK
     Dates: start: 20201028, end: 20201105
  5. TELMISARTAN. [Concomitant]
     Active Substance: TELMISARTAN
     Dosage: UNK
     Dates: end: 20201105
  6. AZOSEMIDE [Concomitant]
     Active Substance: AZOSEMIDE
     Dosage: UNK
     Dates: end: 20201105
  7. TORASEMIDE MYLAN [Suspect]
     Active Substance: TORSEMIDE
     Indication: PRODUCT USED FOR UNKNOWN INDICATION
     Dosage: 8 MILLIGRAM, QD
     Route: 048
     Dates: end: 20201105
  8. SENNOSIDE A+B [Concomitant]
     Active Substance: SENNOSIDES A AND B
     Dosage: UNK
     Dates: start: 20201012
  9. CLOPIDOGREL [Concomitant]
     Active Substance: CLOPIDOGREL BISULFATE
     Dosage: UNK
     Dates: end: 20201105
  10. VADADUSTAT. [Concomitant]
     Active Substance: VADADUSTAT
     Indication: NEPHROGENIC ANAEMIA
     Dosage: UNK
     Dates: start: 20201009, end: 20201105
  11. MEMANTINE HYDROCHLORIDE. [Concomitant]
     Active Substance: MEMANTINE HYDROCHLORIDE
     Dosage: UNK
     Dates: end: 20201105

REACTIONS (2)
  - Gastrointestinal haemorrhage [Fatal]
  - Renal failure [Fatal]

NARRATIVE: CASE EVENT DATE: 20201028
